FAERS Safety Report 11222097 (Version 1)
Quarter: 2015Q2

REPORT INFORMATION
  Report Type: Spontaneous
  Country: DK (occurrence: FR)
  Receive Date: 20150626
  Receipt Date: 20150626
  Transmission Date: 20150821
  Serious: Yes (Other)
  Sender: FDA-Public Use
  Company Number: FR-FRI-1000077701

PATIENT
  Age: 72 Year
  Sex: Female

DRUGS (1)
  1. ESCITALOPRAM [Suspect]
     Active Substance: ESCITALOPRAM OXALATE
     Indication: SURGERY
     Dosage: 10 MG
     Route: 048

REACTIONS (5)
  - Renal disorder [Unknown]
  - Eye swelling [Unknown]
  - Dizziness [Unknown]
  - Product use issue [Unknown]
  - Visual impairment [Unknown]
